FAERS Safety Report 13430731 (Version 2)
Quarter: 2017Q2

REPORT INFORMATION
  Report Type: Spontaneous
  Country: JP (occurrence: JP)
  Receive Date: 20170412
  Receipt Date: 20170508
  Transmission Date: 20170830
  Serious: Yes (Hospitalization, Other)
  Sender: FDA-Public Use
  Company Number: JP-SUN PHARMACEUTICAL INDUSTRIES LTD-2017RR-137425

PATIENT
  Age: 34 Year
  Sex: Female

DRUGS (2)
  1. ACETYLSALICYLIC ACID [Suspect]
     Active Substance: ASPIRIN
     Dosage: RESTARTED ON THE THIRD DAY AFTER THE SURGERY
     Route: 065
  2. ACETYLSALICYLIC ACID [Suspect]
     Active Substance: ASPIRIN
     Indication: KAWASAKI^S DISEASE
     Dosage: 100 MG, DAILY
     Route: 065

REACTIONS (3)
  - Haemorrhage intracranial [Recovered/Resolved]
  - Exposure during pregnancy [Unknown]
  - Subdural haematoma [Recovered/Resolved]
